FAERS Safety Report 8022403-9 (Version None)
Quarter: 2012Q1

REPORT INFORMATION
  Report Type: 
  Country: None (occurrence: None)
  Receive Date: 20120104
  Receipt Date: 20110310
  Transmission Date: 20120608
  Serious: No
  Sender: FDA-Public Use
  Company Number: US-MYLANLABS-2011S1005361

PATIENT
  Age: 25 Year
  Sex: Female
  Weight: 83.92 kg

DRUGS (1)
  1. ZONISAMIDE [Suspect]
     Indication: CONVULSION
     Route: 048
     Dates: start: 20110223, end: 20110308

REACTIONS (1)
  - DRUG SCREEN FALSE POSITIVE [None]
